FAERS Safety Report 8284949 (Version 8)
Quarter: 2013Q2

REPORT INFORMATION
  Report Type: Report from Study
  Country: US (occurrence: US)
  Receive Date: 20111212
  Receipt Date: 20130520
  Transmission Date: 20140414
  Serious: Yes (Hospitalization, Other)
  Sender: FDA-Public Use
  Company Number: PHEH2011US08516

PATIENT
  Age: 53 Year
  Sex: Male
  Weight: 58.96 kg

DRUGS (2)
  1. GILENYA [Suspect]
     Indication: RELAPSING-REMITTING MULTIPLE SCLEROSIS
     Dosage: 1 DF, QD
     Route: 048
     Dates: start: 20110321
  2. GILENYA [Suspect]
     Dosage: 1 DF, QD
     Route: 048

REACTIONS (4)
  - Diplopia [Recovered/Resolved]
  - Cataract subcapsular [Unknown]
  - Vision blurred [Unknown]
  - Migraine with aura [Unknown]
